FAERS Safety Report 15008006 (Version 1)
Quarter: 2018Q2

REPORT INFORMATION
  Report Type: Spontaneous
  Country: US (occurrence: US)
  Receive Date: 20180613
  Receipt Date: 20180613
  Transmission Date: 20180711
  Serious: No
  Sender: FDA-Public Use
  Company Number: US-PERRIGO-18US003477

PATIENT
  Age: 58 Year
  Sex: Male
  Weight: 98.41 kg

DRUGS (2)
  1. LANSOPRAZOLE. [Suspect]
     Active Substance: LANSOPRAZOLE
     Dosage: 15 MG, QD, PRN
     Route: 048
     Dates: start: 201801, end: 201802
  2. LANSOPRAZOLE. [Suspect]
     Active Substance: LANSOPRAZOLE
     Indication: GASTRITIS
     Dosage: 15 MG, QD, PRN
     Route: 048
     Dates: start: 20120518, end: 201801

REACTIONS (2)
  - Expired product administered [Recovered/Resolved]
  - Drug ineffective for unapproved indication [Unknown]

NARRATIVE: CASE EVENT DATE: 201801
